FAERS Safety Report 7833036-9 (Version None)
Quarter: 2011Q4

REPORT INFORMATION
  Report Type: 
  Country: None (occurrence: None)
  Receive Date: 20111024
  Receipt Date: 20111014
  Transmission Date: 20120403
  Serious: Yes (Hospitalization, Other)
  Sender: FDA-Public Use
  Company Number: US-JNJFOC-20111008340

PATIENT
  Sex: Female
  Weight: 99.79 kg

DRUGS (11)
  1. DURAGESIC-100 [Suspect]
     Route: 062
     Dates: start: 20100601, end: 20100101
  2. UNKNOWN MULTIPLE MEDICATION [Concomitant]
     Route: 065
  3. DURAGESIC-100 [Suspect]
     Route: 062
  4. DURAGESIC-100 [Suspect]
     Route: 062
  5. DURAGESIC-100 [Suspect]
     Route: 062
     Dates: start: 20100101, end: 20100101
  6. DURAGESIC-100 [Suspect]
     Route: 062
  7. DURAGESIC-100 [Suspect]
     Dosage: 125MCG/PATCH/100MCG ,25MCG/1 EVERY 72HOURS
     Route: 062
  8. DURAGESIC-100 [Suspect]
     Route: 062
     Dates: start: 20100101
  9. DURAGESIC-100 [Suspect]
     Indication: BACK DISORDER
     Dosage: 150MCG/PATCH/100MCG,50MCG/1 EVERY 72HOURS
     Route: 062
     Dates: end: 20100101
  10. DURAGESIC-100 [Suspect]
     Route: 062
     Dates: start: 20100101, end: 20100101
  11. DURAGESIC-100 [Suspect]
     Route: 062

REACTIONS (9)
  - HYPOAESTHESIA [None]
  - WEIGHT DECREASED [None]
  - BACK PAIN [None]
  - PAIN OF SKIN [None]
  - ROAD TRAFFIC ACCIDENT [None]
  - PRODUCT QUALITY ISSUE [None]
  - BACK INJURY [None]
  - PAIN IN EXTREMITY [None]
  - APPLICATION SITE REACTION [None]
